FAERS Safety Report 5838573-4 (Version None)
Quarter: 2008Q3

REPORT INFORMATION
  Report Type: 
  Country: None (occurrence: None)
  Receive Date: 20080808
  Receipt Date: 20080804
  Transmission Date: 20090109
  Serious: Yes (Death, Life-Threatening, Hospitalization)
  Sender: FDA-Public Use
  Company Number: FR-ASTRAZENECA-2008CG01180

PATIENT
  Age: 99 Year
  Sex: Male

DRUGS (8)
  1. MOPRAL [Suspect]
     Route: 048
     Dates: end: 20080407
  2. PLAVIX [Interacting]
     Route: 048
     Dates: end: 20080407
  3. ALDACTONE [Concomitant]
  4. AMLOR [Concomitant]
  5. ADANCOR [Concomitant]
  6. VASTAREL [Concomitant]
  7. IMOVANE [Concomitant]
  8. NITROGLYCERIN [Concomitant]

REACTIONS (3)
  - DRUG INTERACTION [None]
  - ISCHAEMIC STROKE [None]
  - PNEUMONIA ASPIRATION [None]
